FAERS Safety Report 8265981-7 (Version None)
Quarter: 2012Q2

REPORT INFORMATION
  Report Type: 
  Country: None (occurrence: None)
  Receive Date: 20120403
  Receipt Date: 20120321
  Transmission Date: 20120825
  Serious: Yes (Hospitalization)
  Sender: FDA-Public Use
  Company Number: DSJ-2011-19824

PATIENT
  Age: 75 Year
  Sex: Male

DRUGS (5)
  1. OMEPRAZOLE [Concomitant]
  2. CALCIUM CARBONATE [Concomitant]
  3. ALENDRONATE SODIUM [Concomitant]
  4. BENICAR [Suspect]
     Indication: HYPERTENSION
     Dosage: 40 MG (40 MG, 1 IN 1 D), PER ORAL
     Route: 048
     Dates: start: 20091101, end: 20120101
  5. GLUCOSAMINE/CHONDROITIN (GLUCOSAMINE, CHONDROITIN SULFATE) [Concomitant]

REACTIONS (3)
  - DRUG INEFFECTIVE [None]
  - CALCULUS URINARY [None]
  - KIDNEY INFECTION [None]
